FAERS Safety Report 7150630-1 (Version None)
Quarter: 2010Q4

REPORT INFORMATION
  Report Type: 
  Country: None (occurrence: None)
  Receive Date: 20101207
  Receipt Date: 20101207
  Transmission Date: 20110411
  Serious: No
  Sender: FDA-Public Use
  Company Number: None

PATIENT

DRUGS (3)
  1. PAROXETINE HCL [Suspect]
     Indication: DEPRESSION
     Dates: start: 20100703, end: 20101003
  2. PAROXETINE HCL [Suspect]
  3. PAXIL [Suspect]

REACTIONS (4)
  - AGGRESSION [None]
  - DRUG EFFECT DECREASED [None]
  - IRRITABILITY [None]
  - PRODUCT SUBSTITUTION ISSUE [None]
